FAERS Safety Report 8590296-7 (Version None)
Quarter: 2012Q3

REPORT INFORMATION
  Report Type: 
  Country: None (occurrence: None)
  Receive Date: 20120813
  Receipt Date: 20120808
  Transmission Date: 20120928
  Serious: Yes (Hospitalization)
  Sender: FDA-Public Use
  Company Number: JP-GLAXOSMITHKLINE-B0802609A

PATIENT
  Age: 7 Decade
  Sex: Female

DRUGS (6)
  1. ALPRAZOLAM [Concomitant]
     Dosage: .8MG PER DAY
     Route: 048
  2. ROHYPNOL [Concomitant]
     Dosage: 1MG PER DAY
     Route: 065
  3. LAMICTAL [Suspect]
     Dosage: 50MG PER DAY
     Route: 048
     Dates: start: 20120329, end: 20120402
  4. PRAVASTATIN [Concomitant]
     Dosage: 10MG PER DAY
     Route: 048
  5. PURSENNID [Concomitant]
     Route: 048
  6. LAMICTAL [Suspect]
     Indication: BIPOLAR DISORDER
     Dosage: 25MG PER DAY
     Route: 048
     Dates: start: 20120313

REACTIONS (10)
  - ERYTHEMA MULTIFORME [None]
  - BLOOD LACTATE DEHYDROGENASE INCREASED [None]
  - MONOCYTE PERCENTAGE INCREASED [None]
  - ALANINE AMINOTRANSFERASE INCREASED [None]
  - GAMMA-GLUTAMYLTRANSFERASE INCREASED [None]
  - DRUG RASH WITH EOSINOPHILIA AND SYSTEMIC SYMPTOMS [None]
  - ASPARTATE AMINOTRANSFERASE INCREASED [None]
  - DRUG-INDUCED LIVER INJURY [None]
  - LIVER DISORDER [None]
  - RASH [None]
